FAERS Safety Report 10615433 (Version 1)
Quarter: 2014Q4

REPORT INFORMATION
  Report Type: Spontaneous
  Country: US (occurrence: None)
  Receive Date: 20141125
  Receipt Date: 20141125
  Transmission Date: 20150529
  Serious: No
  Sender: FDA-Public Use
  Company Number: None

PATIENT
  Age: 53 Year
  Sex: Female
  Weight: 57.61 kg

DRUGS (1)
  1. VENLAFAXINE HCL [Suspect]
     Active Substance: VENLAFAXINE HYDROCHLORIDE
     Indication: DEPRESSION
     Dosage: 2 TABS, TWICE DAILY, TAKEN BY MOUTH
     Route: 048

REACTIONS (16)
  - Feeding disorder [None]
  - Diarrhoea [None]
  - Muscle spasms [None]
  - Headache [None]
  - Drug withdrawal syndrome [None]
  - Emotional poverty [None]
  - Hyperhidrosis [None]
  - Cold sweat [None]
  - Thinking abnormal [None]
  - Nausea [None]
  - Weight decreased [None]
  - Disturbance in attention [None]
  - Suicidal ideation [None]
  - Crying [None]
  - Seizure [None]
  - Asthenia [None]
